FAERS Safety Report 9994805 (Version 1)
Quarter: 2014Q1

REPORT INFORMATION
  Report Type: Spontaneous
  Country: GB (occurrence: None)
  Receive Date: 20140306
  Receipt Date: 20140306
  Transmission Date: 20141002
  Serious: Yes (Hospitalization)
  Sender: FDA-Public Use
  Company Number: 2014-000519

PATIENT
  Age: 81 Year
  Sex: Female
  Weight: 61 kg

DRUGS (13)
  1. DORYX [Suspect]
     Indication: PNEUMONIA
     Dosage: EVERY MORNING
     Route: 048
     Dates: start: 20140206
  2. PREDNISOLONE [Suspect]
     Indication: PNEUMONIA
     Route: 048
     Dates: start: 20140205, end: 20140212
  3. AMLODIPINE (AMLODIPINE) [Concomitant]
  4. ASPIRIN (ACETYLSALICYLIC ACID) [Concomitant]
  5. CO-CODAMOL (CODEINE PHOSPHATE, PARACETAMOL) [Concomitant]
  6. FERROUS FUMARATE (FERROUS FUMARATE) [Concomitant]
  7. FOLIC ACID (FOLIC ACID) [Concomitant]
  8. LANSOPRAZOLE (LANSOPRAZOLE) [Concomitant]
  9. RAMIPRIL (RAMIPRIL) [Concomitant]
  10. SALBUTAMOL (SALBUTAMOL) [Concomitant]
  11. SERETIDE (FLUTICASONE PROPIONATE, SALMETEROL XINAFOATE) [Concomitant]
  12. SIMVASTATIN (SIMVASTATIN) [Concomitant]
  13. TIOTROPIUM (TIOTROPIUM) (TIOTROPIUM) [Concomitant]

REACTIONS (2)
  - Haemoglobin decreased [None]
  - Gastrointestinal haemorrhage [None]
